FAERS Safety Report 11157328 (Version 1)
Quarter: 2015Q2

REPORT INFORMATION
  Report Type: Spontaneous
  Country: FR (occurrence: FR)
  Receive Date: 20150603
  Receipt Date: 20150603
  Transmission Date: 20150821
  Serious: Yes (Hospitalization)
  Sender: FDA-Public Use
  Company Number: FR-JNJFOC-20150516232

PATIENT
  Age: 19 Year
  Sex: Female

DRUGS (5)
  1. STODAL [Concomitant]
     Indication: INFLUENZA
     Route: 065
     Dates: start: 20150410, end: 20150410
  2. ACTIFED RHUME JOUR ET NUIT [Suspect]
     Active Substance: ACETAMINOPHEN\DIPHENHYDRAMINE HYDROCHLORIDE\PSEUDOEPHEDRINE HYDROCHLORIDE
     Indication: INFLUENZA
     Route: 048
     Dates: start: 20150410, end: 20150414
  3. ACTIFED RHUME JOUR ET NUIT [Suspect]
     Active Substance: ACETAMINOPHEN\DIPHENHYDRAMINE HYDROCHLORIDE\PSEUDOEPHEDRINE HYDROCHLORIDE
     Indication: INFLUENZA
     Route: 048
     Dates: start: 20150410, end: 20150414
  4. DOLIPRANE [Concomitant]
     Active Substance: ACETAMINOPHEN
     Indication: INFLUENZA
     Route: 065
     Dates: start: 20150410, end: 20150414
  5. HUMEX TOUX SECHE (OXOMEMAZINE) [Concomitant]
     Indication: INFLUENZA
     Route: 065
     Dates: start: 20150410, end: 20150410

REACTIONS (2)
  - Pancreatitis [Recovered/Resolved]
  - Incorrect dose administered [Unknown]

NARRATIVE: CASE EVENT DATE: 20150417
